FAERS Safety Report 25106343 (Version 2)
Quarter: 2025Q2

REPORT INFORMATION
  Report Type: Spontaneous
  Country: JP (occurrence: JP)
  Receive Date: 20250321
  Receipt Date: 20250619
  Transmission Date: 20250716
  Serious: Yes (Other)
  Sender: EISAI
  Company Number: JP-Eisai-202413616_LEN-EC_P_1

PATIENT
  Age: 65 Year
  Sex: Female

DRUGS (7)
  1. LENVATINIB [Suspect]
     Active Substance: LENVATINIB
     Indication: Endometrial cancer recurrent
     Dates: start: 20240424, end: 20240612
  2. LENVATINIB [Suspect]
     Active Substance: LENVATINIB
     Dates: start: 20240613, end: 20240924
  3. LENVATINIB [Suspect]
     Active Substance: LENVATINIB
     Dates: start: 20240925, end: 20241105
  4. LENVATINIB [Suspect]
     Active Substance: LENVATINIB
     Dates: start: 20250115, end: 20250430
  5. KEYTRUDA [Suspect]
     Active Substance: PEMBROLIZUMAB
     Indication: Endometrial cancer recurrent
     Dates: start: 20240424, end: 20241105
  6. KEYTRUDA [Suspect]
     Active Substance: PEMBROLIZUMAB
     Dates: start: 20250115, end: 20250430
  7. LEVOTHYROXINE [Concomitant]
     Active Substance: LEVOTHYROXINE
     Indication: Hypothyroidism

REACTIONS (4)
  - Diarrhoea [Recovered/Resolved]
  - Hypertension [Recovered/Resolved]
  - Hypothyroidism [Recovered/Resolved]
  - Immune-mediated enterocolitis [Recovered/Resolved]

NARRATIVE: CASE EVENT DATE: 20240426
